FAERS Safety Report 7506756-3 (Version None)
Quarter: 2011Q2

REPORT INFORMATION
  Report Type: 
  Country: None (occurrence: None)
  Receive Date: 20110526
  Receipt Date: 20110509
  Transmission Date: 20111010
  Serious: No
  Sender: FDA-Public Use
  Company Number: US-B.I. PHARMACEUTICALS,INC./RIDGEFIELD-2011-BP-12643BP

PATIENT
  Sex: Female

DRUGS (2)
  1. ZANTAC 150 [Suspect]
     Indication: HIATUS HERNIA
  2. ZANTAC 150 [Suspect]
     Indication: PEPTIC ULCER
     Dosage: 300 MG
     Route: 048
     Dates: start: 20101101, end: 20110425

REACTIONS (1)
  - ANXIETY [None]
